FAERS Safety Report 19873567 (Version 3)
Quarter: 2021Q4

REPORT INFORMATION
  Report Type: Spontaneous
  Country: JP (occurrence: JP)
  Receive Date: 20210923
  Receipt Date: 20211104
  Transmission Date: 20220303
  Serious: Yes (Death, Life-Threatening, Other)
  Sender: FDA-Public Use
  Company Number: JP-ONO-2021JP023010

PATIENT
  Age: 74 Year
  Sex: Male
  Weight: 68 kg

DRUGS (4)
  1. BRAFTOVI [Suspect]
     Active Substance: ENCORAFENIB
     Indication: Colon cancer
     Dosage: 450 MG, 1X/DAY
     Route: 048
     Dates: start: 20210714, end: 20210728
  2. MEKTOVI [Suspect]
     Active Substance: BINIMETINIB
     Indication: Colon cancer
     Dosage: 45 MG, Q12H
     Route: 048
     Dates: start: 20210714, end: 20210728
  3. CETUXIMAB [Concomitant]
     Active Substance: CETUXIMAB
     Indication: Colon cancer
     Dosage: 700 MG
     Route: 065
     Dates: start: 20210714, end: 20210714
  4. CETUXIMAB [Concomitant]
     Active Substance: CETUXIMAB
     Dosage: 450 MG
     Route: 065
     Dates: start: 20210721, end: 20210728

REACTIONS (3)
  - Neoplasm progression [Fatal]
  - Duodenal ulcer [Not Recovered/Not Resolved]
  - Renal disorder [Not Recovered/Not Resolved]

NARRATIVE: CASE EVENT DATE: 20210721
